FAERS Safety Report 4410957-0 (Version None)
Quarter: 2004Q2

REPORT INFORMATION
  Report Type: 
  Country: None (occurrence: None)
  Receive Date: 20040630
  Receipt Date: 20040408
  Transmission Date: 20050107
  Serious: No
  Sender: FDA-Public Use
  Company Number: 04P-163-0252791-00

PATIENT
  Age: 63 Year
  Sex: Female
  Weight: 74.8435 kg

DRUGS (13)
  1. HUMIRA [Suspect]
     Indication: RHEUMATOID ARTHRITIS
     Dosage: 40 MG, 1 IN 2 WK, SUBCUTANEOUS
     Route: 058
     Dates: start: 20040213, end: 20040311
  2. LEFLUNOMIDE [Concomitant]
  3. CELECOXIB [Concomitant]
  4. PRINZIDE [Concomitant]
  5. DILTIAZEM HYDROCHLORIDE [Concomitant]
  6. CONJUGATED ESTROGEN [Concomitant]
  7. LOVASTATIN [Concomitant]
  8. RANITIDINE [Concomitant]
  9. TRAZODONE HCL [Concomitant]
  10. SERETIDE MITE [Concomitant]
  11. ALBUTEROL SULFATE [Concomitant]
  12. POTASSIUM [Concomitant]
  13. TRIAMCINOLONE ACETONIDE [Concomitant]

REACTIONS (9)
  - BRONCHIAL INFECTION [None]
  - DIARRHOEA [None]
  - FATIGUE [None]
  - FLATULENCE [None]
  - INJECTION SITE BURNING [None]
  - INJECTION SITE ERYTHEMA [None]
  - MYCETOMA MYCOTIC [None]
  - RASH PRURITIC [None]
  - SINUSITIS [None]
